FAERS Safety Report 7985758-7 (Version None)
Quarter: 2011Q4

REPORT INFORMATION
  Report Type: 
  Country: None (occurrence: None)
  Receive Date: 20111214
  Receipt Date: 20111129
  Transmission Date: 20120403
  Serious: Yes (Death, Other)
  Sender: FDA-Public Use
  Company Number: 2011SP010661

PATIENT
  Age: 60 Year
  Sex: Female
  Weight: 50 kg

DRUGS (3)
  1. DEXAMETHASONE [Concomitant]
  2. RADIOTHERAPY (THERAPEUTIC RADIOPHARMACEUTICALS) [Suspect]
     Indication: GLIOBLASTOMA
     Dates: start: 20051108, end: 20051222
  3. TEMODAL [Suspect]
     Indication: GLIOBLASTOMA
     Dosage: 105 MG, QD, PO
     Route: 048
     Dates: start: 20051108, end: 20051127

REACTIONS (2)
  - LEUKOPENIA [None]
  - TOXICITY TO VARIOUS AGENTS [None]
